FAERS Safety Report 21385964 (Version 2)
Quarter: 2022Q3

REPORT INFORMATION
  Report Type: Report from Study
  Country: US (occurrence: US)
  Receive Date: 20220928
  Receipt Date: 20220929
  Transmission Date: 20221027
  Serious: Yes (Other)
  Sender: FDA-Public Use
  Company Number: US-ABBVIE-4131614

PATIENT
  Age: 73 Year
  Sex: Female
  Weight: 72.574 kg

DRUGS (10)
  1. IMBRUVICA [Suspect]
     Active Substance: IBRUTINIB
     Indication: Waldenstrom^s macroglobulinaemia
     Route: 048
     Dates: start: 20220324, end: 20220921
  2. IMBRUVICA [Suspect]
     Active Substance: IBRUTINIB
     Indication: Waldenstrom^s macroglobulinaemia
     Route: 048
     Dates: start: 202209
  3. LEVOTHYROXINE [Concomitant]
     Active Substance: LEVOTHYROXINE
     Indication: Product used for unknown indication
  4. Pfizer Covid19 Vaccine [Concomitant]
     Indication: COVID-19 immunisation
     Dosage: PFIZER, ONCE
     Route: 030
     Dates: start: 20210115, end: 20210115
  5. Pfizer Covid19 Vaccine [Concomitant]
     Indication: COVID-19 immunisation
     Dosage: PFIZER, ONCE
     Route: 030
     Dates: start: 20211026, end: 20211026
  6. Pfizer Covid19 Vaccine [Concomitant]
     Indication: COVID-19 immunisation
     Dosage: PFIZER, ONCE
     Route: 030
     Dates: start: 20220412, end: 20220412
  7. Pfizer Covid19 Vaccine [Concomitant]
     Indication: COVID-19 immunisation
     Dosage: PFIZER, ONCE
     Route: 030
     Dates: start: 20210201, end: 20210201
  8. LASIX [Concomitant]
     Active Substance: FUROSEMIDE
     Indication: Product used for unknown indication
  9. POTASSIUM [Concomitant]
     Active Substance: POTASSIUM
     Indication: Product used for unknown indication
  10. ENOXAPARIN [Concomitant]
     Active Substance: ENOXAPARIN
     Indication: Product used for unknown indication

REACTIONS (2)
  - Hip fracture [Recovering/Resolving]
  - Fall [Unknown]

NARRATIVE: CASE EVENT DATE: 20220918
